FAERS Safety Report 6487947-X (Version None)
Quarter: 2009Q4

REPORT INFORMATION
  Report Type: 
  Country: None (occurrence: None)
  Receive Date: 20091210
  Receipt Date: 20091202
  Transmission Date: 20100525
  Serious: Yes (Hospitalization)
  Sender: FDA-Public Use
  Company Number: BR-ABBOTT-09P-020-0612038-00

PATIENT
  Sex: Male
  Weight: 58 kg

DRUGS (4)
  1. HUMIRA [Suspect]
     Indication: CROHN'S DISEASE
     Route: 058
     Dates: start: 20091101, end: 20091101
  2. HUMIRA [Suspect]
     Route: 058
     Dates: start: 20091101, end: 20091101
  3. HUMIRA [Suspect]
     Route: 058
     Dates: start: 20091101
  4. CORTISONE [Concomitant]
     Indication: PAIN
     Route: 048
     Dates: start: 20090601

REACTIONS (1)
  - GASTROINTESTINAL FISTULA [None]
